FAERS Safety Report 18213785 (Version 1)
Quarter: 2020Q3

REPORT INFORMATION
  Report Type: Spontaneous
  Country: US (occurrence: US)
  Receive Date: 20200831
  Receipt Date: 20200831
  Transmission Date: 20201103
  Serious: Yes (Hospitalization)
  Sender: FDA-Public Use
  Company Number: None

PATIENT
  Age: 40 Year
  Sex: Female
  Weight: 84.82 kg

DRUGS (3)
  1. DULOXETINE (DULOXETINE HCL 30MG CAP, EC) [Suspect]
     Active Substance: DULOXETINE HYDROCHLORIDE
     Indication: PAIN
     Dates: start: 20200324, end: 20200606
  2. DULOXETINE (DULOXETINE HCL 30MG CAP, EC) [Suspect]
     Active Substance: DULOXETINE HYDROCHLORIDE
     Indication: DEPRESSION
     Dates: start: 20200324, end: 20200606
  3. PREDNISONE (PREDNISONE 5MG TAB) [Suspect]
     Active Substance: PREDNISONE
     Indication: PAIN
     Dates: start: 20200522, end: 20200606

REACTIONS (1)
  - Mania [None]

NARRATIVE: CASE EVENT DATE: 20200606
